FAERS Safety Report 23729953 (Version 1)
Quarter: 2024Q2

REPORT INFORMATION
  Report Type: Spontaneous
  Country: US (occurrence: US)
  Receive Date: 20240411
  Receipt Date: 20240411
  Transmission Date: 20240716
  Serious: Yes (Death, Other)
  Sender: FDA-Public Use
  Company Number: US-SPECGX-T202400873

PATIENT
  Age: 68 Year
  Sex: Male

DRUGS (1)
  1. METHADONE [Suspect]
     Active Substance: METHADONE HYDROCHLORIDE
     Indication: Product used for unknown indication
     Dosage: UNK
     Route: 065

REACTIONS (10)
  - Cardiac arrest [Fatal]
  - Ventricular fibrillation [Fatal]
  - Percutaneous coronary intervention [Unknown]
  - Acute myocardial infarction [Unknown]
  - Arterial stenosis [Unknown]
  - Staphylococcal sepsis [Unknown]
  - Coronary artery aneurysm [Unknown]
  - Fistula [Unknown]
  - Vascular stent occlusion [Unknown]
  - Drug dependence [Unknown]
